FAERS Safety Report 9987303 (Version 2)
Quarter: 2014Q2

REPORT INFORMATION
  Report Type: Spontaneous
  Country: US (occurrence: US)
  Receive Date: 20140307
  Receipt Date: 20140402
  Transmission Date: 20141212
  Serious: No
  Sender: FDA-Public Use
  Company Number: US-AMGEN-USASP2014010799

PATIENT
  Age: 59 Year
  Sex: Female
  Weight: 58.96 kg

DRUGS (5)
  1. ENBREL [Suspect]
     Indication: RHEUMATOID ARTHRITIS
     Dosage: 50 MG, QWK
     Route: 065
     Dates: start: 20140110
  2. ARAVA [Concomitant]
     Dosage: 20 MG, UNK
     Route: 048
  3. SULFASALAZIN [Concomitant]
     Dosage: 500 MG, UNK
     Route: 048
  4. ALEVE [Concomitant]
     Dosage: 220 MG, UNK
     Route: 048
  5. BENADRYL ALLERGY                   /00000402/ [Concomitant]
     Dosage: 25 MG, UNK
     Route: 048

REACTIONS (4)
  - Extra dose administered [Recovered/Resolved]
  - Injection site pain [Not Recovered/Not Resolved]
  - Injection site paraesthesia [Not Recovered/Not Resolved]
  - Injection site reaction [Unknown]
